FAERS Safety Report 21375048 (Version 1)
Quarter: 2022Q3

REPORT INFORMATION
  Report Type: Spontaneous
  Country: CA (occurrence: None)
  Receive Date: 20220926
  Receipt Date: 20220926
  Transmission Date: 20221027
  Serious: Yes (Other)
  Sender: FDA-Public Use
  Company Number: CA-PFIZER INC-202201139413

PATIENT
  Age: 55 Year
  Sex: Male
  Weight: 85 kg

DRUGS (6)
  1. METHOTREXATE [Suspect]
     Active Substance: METHOTREXATE
     Indication: Colitis ulcerative
     Route: 048
     Dates: start: 2017, end: 20220903
  2. MESALAMINE [Concomitant]
     Active Substance: MESALAMINE
     Dosage: 2 CO DAILY
     Route: 065
  3. INH [Concomitant]
     Active Substance: ISONIAZID
     Indication: Tuberculosis
     Route: 065
     Dates: start: 20180508, end: 2019
  4. FOLIC ACID [Concomitant]
     Active Substance: FOLIC ACID
     Route: 048
     Dates: start: 2017
  5. SALOFALK [Concomitant]
     Route: 065
  6. VITAMIN B6 [Concomitant]
     Active Substance: PYRIDOXINE HYDROCHLORIDE
     Indication: Tuberculosis
     Route: 065
     Dates: start: 20180508, end: 2019

REACTIONS (9)
  - Latent tuberculosis [Recovered/Resolved]
  - Drug ineffective for unapproved indication [Unknown]
  - Product use in unapproved indication [Unknown]
  - Colitis ulcerative [Unknown]
  - Oedema [Unknown]
  - Erythema [Unknown]
  - Gastrointestinal inflammation [Unknown]
  - Purulent discharge [Unknown]
  - Stress [Unknown]

NARRATIVE: CASE EVENT DATE: 20180101
